FAERS Safety Report 7263828-9 (Version None)
Quarter: 2011Q1

REPORT INFORMATION
  Report Type: 
  Country: None (occurrence: None)
  Receive Date: 20110130
  Receipt Date: 20101109
  Transmission Date: 20110831
  Serious: No
  Sender: FDA-Public Use
  Company Number: US-ABBOTT-10P-163-0684358-00

PATIENT
  Sex: Female
  Weight: 47.67 kg

DRUGS (16)
  1. HUMIRA [Suspect]
     Dosage: 1.3 A MONTH
     Dates: start: 20100202, end: 20100303
  2. CORTICOSTEROIDS [Concomitant]
     Dates: start: 20100105, end: 20100105
  3. COFFEE [Concomitant]
     Indication: PRODUCT USED FOR UNKNOWN INDICATION
     Dosage: .5 SERVING A DAY
     Route: 048
     Dates: start: 20090630, end: 20090801
  4. HUMIRA [Suspect]
     Indication: CROHN'S DISEASE
     Dosage: DAY 1
     Dates: start: 20090826, end: 20090826
  5. FOLIC ACID [Concomitant]
     Indication: PRODUCT USED FOR UNKNOWN INDICATION
     Route: 048
     Dates: start: 20090813, end: 20100310
  6. COFFEE [Concomitant]
     Dosage: .5 SERVING 4 A WEEK
     Route: 048
     Dates: start: 20090904, end: 20100115
  7. WINE [Concomitant]
     Indication: PRODUCT USED FOR UNKNOWN INDICATION
     Dosage: 2.5 SERVING 5 A WEEK
     Route: 048
     Dates: start: 20090630, end: 20090801
  8. HUMIRA [Suspect]
     Dosage: DAY 1
     Dates: start: 20090909, end: 20090909
  9. TUMS [Concomitant]
     Indication: DYSPEPSIA
     Dosage: 2 PILL
     Route: 048
     Dates: start: 20100127, end: 20100310
  10. PRENATAL VITAMINS [Concomitant]
     Indication: VITAMIN SUPPLEMENTATION
     Dosage: PILL
     Route: 048
     Dates: start: 20090806, end: 20100310
  11. INFLUENZA VACCINE [Concomitant]
     Indication: INFLUENZA IMMUNISATION
     Dosage: SHOT
     Dates: start: 20091112, end: 20091112
  12. H1N1 INFLUENZA VACCINE [Concomitant]
     Indication: INFLUENZA IMMUNISATION
     Dosage: SHOT
     Dates: start: 20091112, end: 20091112
  13. CORTICOSTEROIDS [Concomitant]
     Indication: PROPHYLAXIS
     Dosage: SHOT
     Dates: start: 20100104, end: 20100104
  14. COFFEE [Concomitant]
     Dosage: .5 SERVING 2.5 A WEEK
     Route: 048
     Dates: start: 20100116, end: 20100310
  15. WINE [Concomitant]
     Dosage: 1 SERVING
     Route: 048
     Dates: start: 20090815, end: 20100210
  16. HUMIRA [Suspect]
     Dates: start: 20090923, end: 20100127

REACTIONS (2)
  - GLUCOSE TOLERANCE TEST ABNORMAL [None]
  - ULTRASOUND SCAN ABNORMAL [None]
